FAERS Safety Report 18485619 (Version 1)
Quarter: 2020Q4

REPORT INFORMATION
  Report Type: Report from Study
  Country: HR (occurrence: HR)
  Receive Date: 20201110
  Receipt Date: 20201110
  Transmission Date: 20210114
  Serious: Yes (Other)
  Sender: FDA-Public Use
  Company Number: HR-B.I. PHARMACEUTICALS,INC./RIDGEFIELD-2020-BI-059148

PATIENT
  Age: 71 Year
  Sex: Female
  Weight: 72 kg

DRUGS (1)
  1. PRADAXA [Suspect]
     Active Substance: DABIGATRAN ETEXILATE MESYLATE
     Indication: ATRIAL FIBRILLATION
     Dosage: STRENGTH: 150?DAILY DOSE: 300
     Route: 048

REACTIONS (4)
  - Cardiac ablation [Recovered/Resolved]
  - Thrombosis [Recovered/Resolved]
  - Cardioversion [Recovered/Resolved]
  - Cryotherapy [Recovered/Resolved]
